FAERS Safety Report 7852537-0 (Version None)
Quarter: 2011Q3

REPORT INFORMATION
  Report Type: 
  Country: None (occurrence: None)
  Receive Date: 20110906
  Receipt Date: 20110524
  Transmission Date: 20111222
  Serious: No
  Sender: FDA-Public Use
  Company Number: 201105040

PATIENT
  Age: 85 Year
  Sex: Male

DRUGS (7)
  1. ATENOLOL [Concomitant]
  2. AMLODIPINE [Concomitant]
  3. OFLOXIC [Concomitant]
  4. TYLENOL #3 (CODEINE PHOSPHATE) [Concomitant]
  5. XIAFLEX [Suspect]
     Indication: DUPUYTREN'S CONTRACTURE
     Dosage: 0.58 MG, 1 IN 1 D, INTRALESIONAL
     Route: 026
     Dates: start: 20110510, end: 20110510
  6. LISINOPRIL [Concomitant]
  7. SIMVASTATIN [Concomitant]

REACTIONS (1)
  - TENDERNESS [None]
